FAERS Safety Report 8483326-4 (Version None)
Quarter: 2012Q3

REPORT INFORMATION
  Report Type: 
  Country: None (occurrence: None)
  Receive Date: 20120702
  Receipt Date: 20120619
  Transmission Date: 20120928
  Serious: No
  Sender: FDA-Public Use
  Company Number: US-ASTRAZENECA-2012SE40996

PATIENT
  Age: 50 Year
  Sex: Female
  Weight: 61.2 kg

DRUGS (9)
  1. PRILOSEC [Suspect]
     Route: 048
  2. XANAX [Concomitant]
     Indication: PANIC ATTACK
  3. NEXIUM [Suspect]
     Indication: GASTROOESOPHAGEAL REFLUX DISEASE
     Route: 048
  4. XANAX [Concomitant]
     Indication: BIPOLAR I DISORDER
  5. CHLORD CLIDI [Concomitant]
     Indication: IRRITABLE BOWEL SYNDROME
  6. PRILOSEC [Suspect]
     Indication: GASTROOESOPHAGEAL REFLUX DISEASE
     Route: 048
  7. NAPROXEN [Concomitant]
     Indication: ARTHRITIS
  8. CHLORD CLIDI [Concomitant]
  9. XANAX [Concomitant]
     Indication: ANXIETY

REACTIONS (15)
  - PANIC ATTACK [None]
  - CHEST PAIN [None]
  - SEASONAL ALLERGY [None]
  - ECCHYMOSIS [None]
  - PRURITUS [None]
  - BIPOLAR I DISORDER [None]
  - PARANASAL SINUS HYPERSECRETION [None]
  - DYSPHAGIA [None]
  - ARTHRITIS [None]
  - HOUSE DUST ALLERGY [None]
  - ANXIETY [None]
  - BLISTER [None]
  - DRUG HYPERSENSITIVITY [None]
  - DRUG INEFFECTIVE [None]
  - ABDOMINAL DISTENSION [None]
